FAERS Safety Report 5044751-7 (Version None)
Quarter: 2006Q2

REPORT INFORMATION
  Report Type: 
  Country: None (occurrence: None)
  Receive Date: 20060601
  Receipt Date: 20060227
  Transmission Date: 20061013
  Serious: No
  Sender: FDA-Public Use
  Company Number: 2006-BP-02253BP

PATIENT
  Age: 55 Year
  Sex: Female

DRUGS (6)
  1. SPIRIVA [Suspect]
     Indication: BRONCHITIS
     Dosage: 18 MCG (18 MCG) IH
     Route: 055
  2. DETROL LA [Concomitant]
  3. HYDROCORTISONE [Concomitant]
  4. ROCALTROL [Concomitant]
  5. CALCIUM GLUCONATE [Concomitant]
  6. SYNTHROID [Concomitant]

REACTIONS (4)
  - DIZZINESS [None]
  - DRY MOUTH [None]
  - DYSPNOEA [None]
  - VERTIGO [None]
